FAERS Safety Report 10745839 (Version 1)
Quarter: 2015Q1

REPORT INFORMATION
  Report Type: Report from Study
  Country: JP (occurrence: JP)
  Receive Date: 20150128
  Receipt Date: 20150128
  Transmission Date: 20150721
  Serious: Yes (Hospitalization)
  Sender: FDA-Public Use
  Company Number: JP-EISAI MEDICAL RESEARCH-E2020-09632-CLI-JP

PATIENT
  Age: 66 Year
  Sex: Female
  Weight: 44 kg

DRUGS (16)
  1. BI-SIFROL [Concomitant]
     Active Substance: PRAMIPEXOLE
     Indication: PARKINSON^S DISEASE
     Route: 048
     Dates: end: 20110707
  2. LENDORMIN D [Concomitant]
     Active Substance: BROTIZOLAM
     Indication: INSOMNIA
     Route: 048
     Dates: start: 20090407
  3. MAGMITT [Concomitant]
     Active Substance: MAGNESIUM OXIDE
     Indication: CONSTIPATION
     Route: 048
     Dates: start: 20090407
  4. PRAVASTATIN [Concomitant]
     Active Substance: PRAVASTATIN\PRAVASTATIN SODIUM
     Indication: HYPERLIPIDAEMIA
     Route: 048
     Dates: start: 20090714
  5. FP-OD [Concomitant]
     Active Substance: SELEGILINE HYDROCHLORIDE
     Indication: HYPERLIPIDAEMIA
     Route: 048
     Dates: start: 20100916, end: 20110707
  6. PLACEBO [Suspect]
     Active Substance: UNSPECIFIED INGREDIENT
     Indication: PARKINSON^S DISEASE
     Route: 048
     Dates: start: 20110603, end: 20110609
  7. BI-SIFROL [Concomitant]
     Active Substance: PRAMIPEXOLE
     Route: 048
     Dates: start: 20110708
  8. THYRADIN S [Concomitant]
     Active Substance: LEVOTHYROXINE SODIUM
     Indication: HYPOTHYROIDISM
     Route: 048
     Dates: start: 20100819
  9. NEW LECICARBON [Concomitant]
     Active Substance: SODIUM BICARBONATE\SODIUM PHOSPHATE, MONOBASIC
     Indication: CONSTIPATION
     Route: 054
     Dates: start: 20100714
  10. WYPAX [Concomitant]
     Active Substance: LORAZEPAM
     Indication: PARKINSON^S DISEASE
     Route: 048
     Dates: start: 20110217
  11. PLACEBO [Suspect]
     Active Substance: UNSPECIFIED INGREDIENT
     Route: 048
     Dates: start: 20110610, end: 20110823
  12. MENESIT [Concomitant]
     Active Substance: CARBIDOPA\LEVODOPA
     Indication: PARKINSON^S DISEASE
     Route: 048
     Dates: end: 20110609
  13. FP-OD [Concomitant]
     Active Substance: SELEGILINE HYDROCHLORIDE
     Route: 048
     Dates: start: 20110708
  14. DOPS [Concomitant]
     Active Substance: DROXIDOPA
     Indication: PARKINSON^S DISEASE
     Route: 048
     Dates: start: 20100714
  15. SOFT SANTEAR [Concomitant]
     Indication: DRY EYE
     Route: 031
  16. MENESIT [Concomitant]
     Active Substance: CARBIDOPA\LEVODOPA
     Dates: start: 20110610

REACTIONS (1)
  - Breast cancer [Not Recovered/Not Resolved]

NARRATIVE: CASE EVENT DATE: 20110810
